FAERS Safety Report 5221847-8 (Version None)
Quarter: 2007Q1

REPORT INFORMATION
  Report Type: 
  Country: None (occurrence: None)
  Receive Date: 20070126
  Receipt Date: 20070126
  Transmission Date: 20070707
  Serious: Yes (Life-Threatening, Hospitalization)
  Sender: FDA-Public Use
  Company Number: None

PATIENT
  Age: 25 Year
  Sex: Female
  Weight: 65.7716 kg

DRUGS (3)
  1. APRI [Suspect]
     Indication: DYSMENORRHOEA
     Dosage: 1 TAB  DAILY  PO
     Route: 048
  2. APRI [Suspect]
     Indication: MENORRHAGIA
     Dosage: 1 TAB  DAILY  PO
     Route: 048
  3. APRI [Suspect]
     Indication: ORAL CONTRACEPTION
     Dosage: 1 TAB  DAILY  PO
     Route: 048

REACTIONS (1)
  - PULMONARY EMBOLISM [None]
